FAERS Safety Report 10075645 (Version 2)
Quarter: 2014Q2

REPORT INFORMATION
  Report Type: Spontaneous
  Country: US (occurrence: US)
  Receive Date: 20140414
  Receipt Date: 20140613
  Transmission Date: 20141212
  Serious: Yes (Other)
  Sender: FDA-Public Use
  Company Number: US-SA-2014SA045659

PATIENT
  Age: 73 Year
  Sex: Male
  Weight: 102.5 kg

DRUGS (8)
  1. FABRAZYME [Suspect]
     Indication: FABRY^S DISEASE
     Route: 042
     Dates: start: 20111129
  2. IBUPROFEN [Concomitant]
     Indication: PREMEDICATION
  3. TYLENOL [Concomitant]
     Indication: PREMEDICATION
  4. ALLOPURINOL [Concomitant]
  5. FLECAINIDE [Concomitant]
  6. LEVOFLOXACIN [Concomitant]
  7. LEVOTHYROXINE [Concomitant]
  8. NIACIN [Concomitant]

REACTIONS (1)
  - Renal impairment [Not Recovered/Not Resolved]
